FAERS Safety Report 24422484 (Version 2)
Quarter: 2025Q3

REPORT INFORMATION
  Report Type: Report from Study
  Country: IN (occurrence: IN)
  Receive Date: 20241010
  Receipt Date: 20250825
  Transmission Date: 20251021
  Serious: Yes (Other)
  Sender: NOVARTIS
  Company Number: IN-SANDOZ-SDZ2024IN054847

PATIENT
  Sex: Male

DRUGS (2)
  1. TACROLIMUS [Suspect]
     Active Substance: TACROLIMUS
     Indication: Renal transplant
     Dosage: 1 MG, QD (0.5 MG, BID)
     Route: 048
     Dates: start: 2012
  2. MYFORTIC [Suspect]
     Active Substance: MYCOPHENOLATE SODIUM
     Indication: Renal transplant
     Dosage: 540 MG, QD (180MG-0-360MG)
     Route: 048

REACTIONS (8)
  - Transplant rejection [Unknown]
  - Complications of transplant surgery [Unknown]
  - Amoebic dysentery [Unknown]
  - New onset diabetes after transplantation [Unknown]
  - Transplant dysfunction [Unknown]
  - Hypertension [Unknown]
  - Peripheral swelling [Unknown]
  - Off label use [Unknown]

NARRATIVE: CASE EVENT DATE: 20190101
